FAERS Safety Report 19047215 (Version 1)
Quarter: 2021Q1

REPORT INFORMATION
  Report Type: Spontaneous
  Country: US (occurrence: US)
  Receive Date: 20210323
  Receipt Date: 20210323
  Transmission Date: 20210420
  Serious: No
  Sender: FDA-Public Use
  Company Number: US-ELI_LILLY_AND_COMPANY-US202103010650

PATIENT
  Age: 56 Year
  Sex: Male

DRUGS (3)
  1. PARACETAMOL [Concomitant]
     Active Substance: ACETAMINOPHEN
     Indication: COVID-19
     Dosage: 2 DOSAGE FORM, UNKNOWN
     Route: 065
  2. BAMLANIVIMAB. [Suspect]
     Active Substance: BAMLANIVIMAB
     Indication: COVID-19
     Dosage: UNK UNK, UNKNOWN
     Route: 042
     Dates: start: 20210318, end: 20210318
  3. ROBITUSSIN COUGH SOOTHER [DEXTROMETHORPHAN HY [Concomitant]
     Indication: COVID-19
     Dosage: 2 DOSAGE FORM, UNKNOWN
     Route: 065

REACTIONS (5)
  - Hyperhidrosis [Recovered/Resolved]
  - Head discomfort [Recovering/Resolving]
  - Pyrexia [Recovered/Resolved]
  - Chills [Recovered/Resolved]
  - Headache [Recovering/Resolving]

NARRATIVE: CASE EVENT DATE: 20210318
